FAERS Safety Report 21650792 (Version 2)
Quarter: 2022Q4

REPORT INFORMATION
  Report Type: Other
  Country: CA (occurrence: None)
  Receive Date: 20221128
  Receipt Date: 20221227
  Transmission Date: 20230112
  Serious: Yes (Hospitalization)
  Sender: FDA-Public Use
  Company Number: CA-ROCHE-3222944

PATIENT
  Age: 53 Year
  Sex: Female
  Weight: 82 kg

DRUGS (15)
  1. ACTEMRA [Suspect]
     Active Substance: TOCILIZUMAB
     Indication: Rheumatoid arthritis
     Route: 042
     Dates: end: 20110124
  2. ACTEMRA [Suspect]
     Active Substance: TOCILIZUMAB
     Route: 042
     Dates: start: 20110215, end: 20120215
  3. ACTEMRA [Suspect]
     Active Substance: TOCILIZUMAB
     Route: 042
     Dates: start: 20120313, end: 20120703
  4. ACTEMRA [Suspect]
     Active Substance: TOCILIZUMAB
     Route: 042
     Dates: start: 20120731, end: 20131108
  5. ACTEMRA [Suspect]
     Active Substance: TOCILIZUMAB
     Route: 042
     Dates: start: 20131205, end: 20181115
  6. ACTEMRA [Suspect]
     Active Substance: TOCILIZUMAB
     Route: 042
     Dates: start: 20181213, end: 20191031
  7. ACTEMRA [Suspect]
     Active Substance: TOCILIZUMAB
     Route: 042
     Dates: start: 20191230, end: 20200128
  8. ACTEMRA [Suspect]
     Active Substance: TOCILIZUMAB
     Route: 042
     Dates: start: 20200224, end: 20201112
  9. ACTEMRA [Suspect]
     Active Substance: TOCILIZUMAB
     Route: 042
     Dates: start: 20201218, end: 20201218
  10. ACTEMRA [Suspect]
     Active Substance: TOCILIZUMAB
     Route: 042
     Dates: start: 20210107
  11. AUBAGIO [Concomitant]
     Active Substance: TERIFLUNOMIDE
  12. CELEBREX [Concomitant]
     Active Substance: CELECOXIB
  13. COPAXONE [Concomitant]
     Active Substance: GLATIRAMER ACETATE
  14. LYRICA [Concomitant]
     Active Substance: PREGABALIN
  15. PROGESTERONE [Concomitant]
     Active Substance: PROGESTERONE

REACTIONS (6)
  - Ear pruritus [Unknown]
  - Swelling face [Unknown]
  - Lip swelling [Unknown]
  - Erythema [Recovered/Resolved]
  - Pruritus [Recovered/Resolved]
  - Weight increased [Unknown]

NARRATIVE: CASE EVENT DATE: 20221116
